FAERS Safety Report 20615437 (Version 2)
Quarter: 2022Q2

REPORT INFORMATION
  Report Type: Spontaneous
  Country: ES (occurrence: ES)
  Receive Date: 20220321
  Receipt Date: 20220512
  Transmission Date: 20220721
  Serious: Yes (Other)
  Sender: FDA-Public Use
  Company Number: ES-CELLTRION INC.-2022ES003100

PATIENT

DRUGS (1)
  1. INFLIXIMAB [Suspect]
     Active Substance: INFLIXIMAB
     Indication: Crohn^s disease
     Dosage: 5 MG/KG, 1 MONTH, 5 MG/KG, MONTHLY
     Route: 065

REACTIONS (3)
  - Rash pustular [Recovered/Resolved]
  - Product use issue [Unknown]
  - Off label use [Unknown]
